FAERS Safety Report 7422254-X (Version None)
Quarter: 2011Q2

REPORT INFORMATION
  Report Type: 
  Country: None (occurrence: None)
  Receive Date: 20110419
  Receipt Date: 20110404
  Transmission Date: 20111010
  Serious: Yes (Other)
  Sender: FDA-Public Use
  Company Number: ES-RANBAXY-2011RR-43478

PATIENT
  Age: 32 Year
  Sex: Female

DRUGS (2)
  1. DESLORATADINE [Suspect]
     Indication: NASOPHARYNGITIS
     Route: 048
  2. CETIRIZINE HCL [Suspect]
     Route: 048

REACTIONS (1)
  - URTICARIA [None]
